FAERS Safety Report 7445314-6 (Version None)
Quarter: 2011Q2

REPORT INFORMATION
  Report Type: 
  Country: None (occurrence: None)
  Receive Date: 20110429
  Receipt Date: 20110107
  Transmission Date: 20111010
  Serious: Yes (Other)
  Sender: FDA-Public Use
  Company Number: A0904085A

PATIENT
  Sex: Female

DRUGS (2)
  1. LEUKERAN [Suspect]
     Indication: IGA NEPHROPATHY
     Dosage: 2MG PER DAY
     Route: 048
  2. PREDNISONE [Concomitant]

REACTIONS (1)
  - MYELODYSPLASTIC SYNDROME [None]
